FAERS Safety Report 20551948 (Version 1)
Quarter: 2022Q1

REPORT INFORMATION
  Report Type: Spontaneous
  Country: US (occurrence: None)
  Receive Date: 20220223
  Receipt Date: 20220223
  Transmission Date: 20220424
  Serious: Yes (Other)
  Sender: FDA-Public Use
  Company Number: None

PATIENT
  Age: 55 Year
  Sex: Female
  Weight: 93.89 kg

DRUGS (6)
  1. EVUSHELD [Suspect]
     Active Substance: CILGAVIMAB\TIXAGEVIMAB
     Indication: Multiple sclerosis
     Route: 030
     Dates: start: 20220212
  2. GABAPENTIN [Concomitant]
     Active Substance: GABAPENTIN
  3. BUPROPION [Concomitant]
     Active Substance: BUPROPION
  4. CITALOPRAM [Concomitant]
     Active Substance: CITALOPRAM HYDROBROMIDE
  5. ESTRADIOL [Concomitant]
     Active Substance: ESTRADIOL
  6. OCRELIZUMAB [Concomitant]
     Active Substance: OCRELIZUMAB

REACTIONS (4)
  - Injection related reaction [None]
  - Headache [None]
  - Multiple sclerosis relapse [None]
  - Spinal cord injury [None]

NARRATIVE: CASE EVENT DATE: 20220212
